FAERS Safety Report 25088634 (Version 1)
Quarter: 2025Q1

REPORT INFORMATION
  Report Type: Spontaneous
  Country: US (occurrence: None)
  Receive Date: 20250317
  Receipt Date: 20250317
  Transmission Date: 20250409
  Serious: Yes (Death)
  Sender: FDA-CTU
  Company Number: None

PATIENT
  Age: 72 Year
  Sex: Male
  Weight: 72 kg

DRUGS (1)
  1. APIXABAN [Suspect]
     Active Substance: APIXABAN
     Indication: Deep vein thrombosis
     Dosage: FREQUENCY : TWICE A DAY;?
     Route: 048

REACTIONS (4)
  - Deep vein thrombosis [None]
  - Fall [None]
  - Haematoma [None]
  - Therapy interrupted [None]

NARRATIVE: CASE EVENT DATE: 20250307
